FAERS Safety Report 10730726 (Version 1)
Quarter: 2015Q1

REPORT INFORMATION
  Report Type: Spontaneous
  Country: US (occurrence: US)
  Receive Date: 20150122
  Receipt Date: 20150122
  Transmission Date: 20150721
  Serious: Yes (Death, Other)
  Sender: FDA-Public Use
  Company Number: US-UCBSA-2015001896

PATIENT
  Age: 49 Year
  Sex: Male

DRUGS (2)
  1. OXYCODONE [Suspect]
     Active Substance: OXYCODONE
  2. ALPRAZOLAM. [Suspect]
     Active Substance: ALPRAZOLAM

REACTIONS (1)
  - Drug abuse [Fatal]
